FAERS Safety Report 6653510-0 (Version None)
Quarter: 2010Q1

REPORT INFORMATION
  Report Type: 
  Country: None (occurrence: None)
  Receive Date: 20100326
  Receipt Date: 20100316
  Transmission Date: 20100710
  Serious: Yes (Hospitalization, Other)
  Sender: FDA-Public Use
  Company Number: JP-ABBOTT-10P-087-0628814-00

PATIENT
  Sex: Female

DRUGS (14)
  1. HUMIRA [Suspect]
     Indication: RHEUMATOID ARTHRITIS
     Route: 058
     Dates: start: 20090318, end: 20100122
  2. PREDNISOLONE [Concomitant]
     Indication: RHEUMATOID ARTHRITIS
     Route: 048
     Dates: start: 20031106, end: 20090611
  3. PREDNISOLONE [Concomitant]
     Dates: start: 20090612, end: 20091001
  4. PREDNISOLONE [Concomitant]
     Dates: start: 20091002
  5. TACROLIMUS HYDRATE [Concomitant]
     Indication: RHEUMATOID ARTHRITIS
     Route: 048
     Dates: start: 20061122, end: 20090806
  6. TACROLIMUS HYDRATE [Concomitant]
     Route: 048
     Dates: start: 20090807, end: 20091001
  7. TACROLIMUS HYDRATE [Concomitant]
     Route: 048
     Dates: start: 20091002
  8. BUCILLAMINE [Concomitant]
     Indication: RHEUMATOID ARTHRITIS
     Dates: start: 20031106
  9. METHOTREXATE [Concomitant]
     Indication: RHEUMATOID ARTHRITIS
     Route: 048
     Dates: start: 20060313
  10. LOMOXICAM [Concomitant]
     Indication: RHEUMATOID ARTHRITIS
     Dates: start: 20030315
  11. ZALTOPROFEN [Concomitant]
     Indication: RHEUMATOID ARTHRITIS
     Route: 048
     Dates: start: 20030313
  12. ISONIAZID [Concomitant]
     Indication: ANTIBIOTIC PROPHYLAXIS
     Route: 048
     Dates: start: 20090311
  13. RANITIDINE HYDROCHLORIDE [Concomitant]
     Indication: GASTRIC ULCER
     Route: 048
     Dates: start: 20061205
  14. RANITIDINE HYDROCHLORIDE [Concomitant]
     Indication: GASTRITIS

REACTIONS (5)
  - C-REACTIVE PROTEIN INCREASED [None]
  - COUGH [None]
  - ORGANISING PNEUMONIA [None]
  - PNEUMONIA MORAXELLA [None]
  - SPUTUM INCREASED [None]
